FAERS Safety Report 4375527-1 (Version None)
Quarter: 2004Q2

REPORT INFORMATION
  Report Type: 
  Country: None (occurrence: None)
  Receive Date: 20040610
  Receipt Date: 20040602
  Transmission Date: 20050107
  Serious: Yes (Other)
  Sender: FDA-Public Use
  Company Number: NSADSS2003018154

PATIENT
  Sex: Female
  Weight: 77.11 kg

DRUGS (2)
  1. ORTHO CYCLEN-28 [Suspect]
     Indication: ABDOMINAL PAIN
     Route: 049
     Dates: start: 20021201, end: 20030301
  2. ORTHO CYCLEN-28 [Suspect]
     Route: 049
     Dates: start: 20021201, end: 20030301

REACTIONS (3)
  - COUGH [None]
  - LEUKOCYTOCLASTIC VASCULITIS [None]
  - NAUSEA [None]
